FAERS Safety Report 19399771 (Version 1)
Quarter: 2021Q2

REPORT INFORMATION
  Report Type: Spontaneous
  Country: GB (occurrence: GB)
  Receive Date: 20210610
  Receipt Date: 20210610
  Transmission Date: 20210717
  Serious: Yes (Other)
  Sender: FDA-Public Use
  Company Number: GB-JNJFOC-20210620917

PATIENT
  Age: 90 Year
  Sex: Female
  Weight: 65 kg

DRUGS (6)
  1. LOSARTAN. [Concomitant]
     Active Substance: LOSARTAN
     Indication: ILL-DEFINED DISORDER
     Dosage: 1 DOSAGE FORM, 1/DAY
     Route: 065
     Dates: start: 20210607
  2. CARBIMAZOLE [Concomitant]
     Active Substance: CARBIMAZOLE
     Indication: ILL-DEFINED DISORDER
     Dosage: UNK UNK, 1/DAY
     Route: 065
     Dates: start: 20210607
  3. APIXABAN [Concomitant]
     Active Substance: APIXABAN
     Indication: ILL-DEFINED DISORDER
     Dosage: 1 DOSAGE FORM, 2/DAY
     Route: 065
     Dates: start: 20210607
  4. TRAMADOL HYDROCHLORIDE. [Suspect]
     Active Substance: TRAMADOL HYDROCHLORIDE
     Indication: PRODUCT USED FOR UNKNOWN INDICATION
     Dosage: 50 MILLIGRAM
     Route: 065
     Dates: start: 20210607
  5. HYDROXOCOBALAMIN [Concomitant]
     Active Substance: HYDROXOCOBALAMIN
     Indication: ILL-DEFINED DISORDER
     Dosage: UNK, QUARTERLY
     Route: 030
     Dates: start: 20210602
  6. SIMVASTATIN. [Concomitant]
     Active Substance: SIMVASTATIN
     Indication: ILL-DEFINED DISORDER
     Dosage: 1 DOSAGE FORM, 1/DAY
     Route: 065
     Dates: start: 20210607

REACTIONS (1)
  - Drug intolerance [Unknown]

NARRATIVE: CASE EVENT DATE: 20210607
